FAERS Safety Report 8613767 (Version 6)
Quarter: 2014Q2

REPORT INFORMATION
  Report Type: Spontaneous
  Country: US (occurrence: US)
  Receive Date: 20120614
  Receipt Date: 20140404
  Transmission Date: 20141212
  Serious: Yes (Hospitalization, Other)
  Sender: FDA-Public Use
  Company Number: US-ASTRAZENECA-2012SE36233

PATIENT
  Age: 62 Year
  Sex: Female

DRUGS (9)
  1. NEXIUM [Suspect]
     Indication: GASTROOESOPHAGEAL REFLUX DISEASE
     Route: 048
     Dates: start: 20070514
  2. NEXIUM [Suspect]
     Indication: GASTROOESOPHAGEAL REFLUX DISEASE
     Route: 048
     Dates: start: 200705, end: 201009
  3. PANTOPRAZOLE [Concomitant]
     Indication: GASTROOESOPHAGEAL REFLUX DISEASE
  4. CELEBREX [Concomitant]
     Dates: start: 20070115
  5. METHYLPRED [Concomitant]
     Dates: start: 20070115
  6. ZOLOFT [Concomitant]
     Dates: start: 20070115
  7. MECLIZINE [Concomitant]
     Dates: start: 20071112
  8. CALCIUM WITH VITAMIN D [Concomitant]
     Indication: BONE LOSS
  9. PREMARIN [Concomitant]

REACTIONS (16)
  - Femoral neck fracture [Unknown]
  - Femur fracture [Unknown]
  - Pelvic fracture [Unknown]
  - Wrist fracture [Unknown]
  - Ankle fracture [Unknown]
  - Tibia fracture [Unknown]
  - Upper limb fracture [Unknown]
  - Foot fracture [Unknown]
  - Humerus fracture [Unknown]
  - Fibula fracture [Unknown]
  - Osteoporosis [Unknown]
  - Fall [Unknown]
  - Osteoarthritis [Unknown]
  - Arthritis [Unknown]
  - Depression [Unknown]
  - Glaucoma [Unknown]
